FAERS Safety Report 6282470-X (Version None)
Quarter: 2009Q3

REPORT INFORMATION
  Report Type: 
  Country: None (occurrence: None)
  Receive Date: 20090724
  Receipt Date: 20090625
  Transmission Date: 20100115
  Serious: Yes (Hospitalization)
  Sender: FDA-Public Use
  Company Number: US-JNJFOC-20090609060

PATIENT
  Age: 57 Year
  Sex: Male
  Weight: 60.33 kg

DRUGS (12)
  1. HALOPERIDOL DECANOATE [Suspect]
     Indication: SCHIZOPHRENIA
     Route: 030
  2. RISPERDAL [Suspect]
     Indication: SCHIZOPHRENIA
     Route: 048
  3. TRAZODONE [Concomitant]
     Indication: INSOMNIA
     Route: 048
  4. RANITIDINE [Concomitant]
     Indication: GASTRIC DISORDER
     Route: 048
  5. OMEPRAZOLE [Concomitant]
     Indication: GASTROOESOPHAGEAL REFLUX DISEASE
     Route: 048
  6. LISINOPRIL [Concomitant]
     Indication: HYPERTENSION
     Route: 048
  7. ASPIRIN [Concomitant]
     Indication: ANTICOAGULANT THERAPY
     Route: 048
  8. POTASSIUM CHLORIDE [Concomitant]
     Route: 048
  9. COGENTIN [Concomitant]
     Indication: MUSCULOSKELETAL STIFFNESS
     Route: 065
  10. LAMOTRIGINE [Concomitant]
     Indication: DRUG THERAPY
     Route: 048
  11. INHALERS [Concomitant]
     Indication: CHRONIC OBSTRUCTIVE PULMONARY DISEASE
     Route: 065
  12. TYLENOL [Concomitant]
     Route: 048

REACTIONS (6)
  - INAPPROPRIATE SCHEDULE OF DRUG ADMINISTRATION [None]
  - INJECTION SITE REACTION [None]
  - MUSCULOSKELETAL STIFFNESS [None]
  - PROCEDURAL COMPLICATION [None]
  - RESTLESSNESS [None]
  - SCHIZOPHRENIA [None]
